FAERS Safety Report 16314390 (Version 4)
Quarter: 2019Q4

REPORT INFORMATION
  Report Type: Report from Study
  Country: CA (occurrence: CA)
  Receive Date: 20190515
  Receipt Date: 20191016
  Transmission Date: 20200122
  Serious: Yes (Hospitalization)
  Sender: FDA-Public Use
  Company Number: CA-TAKEDA-2019TUS030003

PATIENT
  Age: 66 Year
  Sex: Female

DRUGS (3)
  1. DEXAMETHASONE. [Suspect]
     Active Substance: DEXAMETHASONE
     Indication: PRODUCT USED FOR UNKNOWN INDICATION
     Dosage: UNK
     Route: 065
  2. CYCLOPHOSPHAMIDE. [Concomitant]
     Active Substance: CYCLOPHOSPHAMIDE
     Indication: PRODUCT USED FOR UNKNOWN INDICATION
     Dosage: UNK
     Route: 065
  3. IXAZOMIB [Suspect]
     Active Substance: IXAZOMIB
     Indication: PLASMA CELL MYELOMA
     Dosage: 4 MILLIGRAM
     Route: 048
     Dates: start: 20180608

REACTIONS (2)
  - Hip fracture [Unknown]
  - Fall [Unknown]
